FAERS Safety Report 8204887-6 (Version None)
Quarter: 2012Q1

REPORT INFORMATION
  Report Type: 
  Country: None (occurrence: None)
  Receive Date: 20120313
  Receipt Date: 20120229
  Transmission Date: 20120608
  Serious: Yes (Hospitalization)
  Sender: FDA-Public Use
  Company Number: BR-ELI_LILLY_AND_COMPANY-BR201203000062

PATIENT
  Sex: Female
  Weight: 65 kg

DRUGS (6)
  1. FORTEO [Suspect]
     Indication: OSTEOPOROSIS
     Dosage: UNK, QD
     Route: 058
     Dates: start: 20120201
  2. VERAPAMIL [Concomitant]
     Dosage: UNK, UNKNOWN
     Route: 065
  3. AMARYL [Concomitant]
     Dosage: UNK, UNKNOWN
     Route: 065
  4. VITAMIN TAB [Concomitant]
     Dosage: UNK, UNKNOWN
     Route: 065
  5. LEVOTHYROXINE SODIUM [Concomitant]
     Dosage: UNK, UNKNOWN
     Route: 065
  6. ARADOIS H [Concomitant]
     Dosage: UNK, UNKNOWN
     Route: 065

REACTIONS (2)
  - CONDITION AGGRAVATED [None]
  - PAIN [None]
